FAERS Safety Report 5179453-X (Version None)
Quarter: 2006Q4

REPORT INFORMATION
  Report Type: 
  Country: None (occurrence: None)
  Receive Date: 20061219
  Receipt Date: 20061204
  Transmission Date: 20070319
  Serious: Yes (Other)
  Sender: FDA-Public Use
  Company Number: SG-BRISTOL-MYERS SQUIBB COMPANY-13600309

PATIENT
  Age: 62 Year
  Sex: Male

DRUGS (8)
  1. GATIFLOXACIN [Suspect]
     Route: 048
     Dates: start: 20000816
  2. MOXIFLOXACIN HCL [Suspect]
     Dates: start: 20000901
  3. LEVOFLOXACIN [Concomitant]
     Dates: start: 20000721
  4. CEFTRIAXONE [Concomitant]
     Route: 042
     Dates: start: 20000801
  5. CLINDAMYCIN [Concomitant]
     Route: 042
     Dates: start: 20000801
  6. VANCOMYCIN [Concomitant]
     Dates: start: 20000701, end: 20000721
  7. CEFTAZIDIME [Concomitant]
     Dates: start: 20000710
  8. ERYTHROMYCIN [Concomitant]
     Route: 042
     Dates: start: 20000710

REACTIONS (1)
  - INFECTION MASKED [None]
